FAERS Safety Report 10312085 (Version 1)
Quarter: 2014Q3

REPORT INFORMATION
  Report Type: Spontaneous
  Country: US (occurrence: US)
  Receive Date: 20140717
  Receipt Date: 20140717
  Transmission Date: 20150326
  Serious: No
  Sender: FDA-Public Use
  Company Number: US-009507513-1407USA005643

PATIENT
  Sex: Female

DRUGS (1)
  1. NEXPLANON [Suspect]
     Active Substance: ETONOGESTREL
     Indication: CONTRACEPTION
     Dosage: 68MG / ONE ROD
     Route: 059
     Dates: start: 20140627

REACTIONS (4)
  - Device expulsion [Recovered/Resolved]
  - Implant site pain [Not Recovered/Not Resolved]
  - Device dislocation [Unknown]
  - Device deployment issue [Unknown]

NARRATIVE: CASE EVENT DATE: 2014
